FAERS Safety Report 16684770 (Version 4)
Quarter: 2019Q3

REPORT INFORMATION
  Report Type: Spontaneous
  Country: GB (occurrence: GB)
  Receive Date: 20190808
  Receipt Date: 20190912
  Transmission Date: 20191004
  Serious: Yes (Life-Threatening, Hospitalization, Other)
  Sender: FDA-Public Use
  Company Number: GB-PFIZER INC-2019336630

PATIENT
  Age: 84 Year
  Sex: Male

DRUGS (15)
  1. AMINOVEN [Suspect]
     Active Substance: AMINO ACIDS
     Indication: PARENTERAL NUTRITION
     Dosage: UNK
     Route: 042
  2. POTASSIUM CHLORIDE. [Suspect]
     Active Substance: POTASSIUM CHLORIDE
     Indication: PARENTERAL NUTRITION
     Dosage: UNK
     Route: 042
  3. SODIUM GLYCEROPHOSPHATE [Suspect]
     Active Substance: SODIUM GLYCEROPHOSPHATE
     Indication: PARENTERAL NUTRITION
     Dosage: UNK
     Route: 042
  4. SODIUM CHLORIDE. [Suspect]
     Active Substance: SODIUM CHLORIDE
     Indication: PARENTERAL NUTRITION
     Dosage: UNK
     Route: 042
  5. WATER FOR INJECTION [Suspect]
     Active Substance: WATER
     Indication: PARENTERAL NUTRITION
     Dosage: UNK
     Route: 042
  6. MAGNESIUM SULFATE. [Suspect]
     Active Substance: MAGNESIUM SULFATE
     Indication: PARENTERAL NUTRITION
     Dosage: UNK
     Route: 042
  7. VITALIPID ADULT [Suspect]
     Active Substance: ERGOCALCIFEROL\PHYTONADIONE\RETINOL\TOCOPHEROL
     Indication: PARENTERAL NUTRITION
     Dosage: UNK
     Route: 042
  8. SODIUM CHLORIDE. [Suspect]
     Active Substance: SODIUM CHLORIDE
     Dosage: UNK
  9. CALCIUM CHLORIDE. [Suspect]
     Active Substance: CALCIUM CHLORIDE
     Indication: PARENTERAL NUTRITION
     Dosage: UNK
     Route: 042
  10. PROSOL [Suspect]
     Active Substance: ALANINE\ARGININE\ASPARTIC ACID\GLUTAMIC ACID\GLYCINE\HISTIDINE\ISOLEUCINE\LEUCINE\LYSINE ACETATE\METHIONINE\PHENYLALANINE\PROLINE\SERINE\THREONINE\TRYPTOPHAN\TYROSINE\VALINE
     Indication: PARENTERAL NUTRITION
     Dosage: UNK
     Route: 042
  11. OLIVE OIL [Suspect]
     Active Substance: OLIVE OIL
     Indication: PARENTERAL NUTRITION
     Dosage: UNK
     Route: 042
  12. ADDAMEL N [Suspect]
     Active Substance: CHROMIC CHLORIDE\CUPROUS CHLORIDE\FERRIC CHLORIDE\MANGANESE CHLORIDE\POTASSIUM IODIDE\SODIUM FLUORIDE\SODIUM MOLYBDATE DIHYDRATE\SODIUM SELENITE\ZINC CHLORIDE
     Indication: PARENTERAL NUTRITION
     Dosage: UNK
     Route: 042
  13. SOLUVIT N [ACETIC ACID;ASCORBIC ACID;BIOTIN;CYANOCOBALAMIN;FOLIC ACID; [Suspect]
     Active Substance: VITAMINS
     Indication: PARENTERAL NUTRITION
     Dosage: UNK
     Route: 042
  14. SOYA OIL [Suspect]
     Active Substance: SOYBEAN OIL
     Indication: PARENTERAL NUTRITION
     Dosage: UNK
     Route: 042
  15. GLUCOSE [Suspect]
     Active Substance: DEXTROSE
     Indication: PARENTERAL NUTRITION
     Dosage: UNK
     Route: 042

REACTIONS (4)
  - Malaise [Unknown]
  - Sepsis [Unknown]
  - Cardiac arrest [Unknown]
  - Body temperature increased [Unknown]

NARRATIVE: CASE EVENT DATE: 201907
